FAERS Safety Report 7152533-5 (Version None)
Quarter: 2010Q4

REPORT INFORMATION
  Report Type: 
  Country: None (occurrence: None)
  Receive Date: 20101209
  Receipt Date: 20101209
  Transmission Date: 20110411
  Serious: Yes (Other)
  Sender: FDA-Public Use
  Company Number: None

PATIENT
  Age: 22 Year
  Sex: Male
  Weight: 79.3795 kg

DRUGS (7)
  1. NUVIGIL [Suspect]
     Indication: SEDATION
     Dosage: 50MG DAILY PO
     Route: 048
     Dates: start: 20101102, end: 20101110
  2. CLOZARIL [Concomitant]
  3. DEPAKENE [Concomitant]
  4. ATOPIME [Concomitant]
  5. LITHIUM CARBONATE [Concomitant]
  6. PROLIXIN [Concomitant]
  7. PROLIXIN [Concomitant]

REACTIONS (1)
  - ANGIOEDEMA [None]
